FAERS Safety Report 22244812 (Version 1)
Quarter: 2023Q2

REPORT INFORMATION
  Report Type: Spontaneous
  Country: US (occurrence: US)
  Receive Date: 20230424
  Receipt Date: 20230424
  Transmission Date: 20230722
  Serious: No
  Sender: FDA-Public Use
  Company Number: US-LEO Pharma-351259

PATIENT
  Sex: Female

DRUGS (18)
  1. ADBRY [Suspect]
     Active Substance: TRALOKINUMAB-LDRM
     Indication: Dermatitis atopic
     Dosage: 4 INJECTIONS FOR THE INITIAL DOSE
     Route: 058
     Dates: start: 20230127
  2. ADBRY [Suspect]
     Active Substance: TRALOKINUMAB-LDRM
     Indication: Dermatitis atopic
     Dosage: 4 INJECTIONS FOR THE INITIAL DOSE
     Route: 058
     Dates: start: 20230127
  3. ADBRY [Suspect]
     Active Substance: TRALOKINUMAB-LDRM
     Indication: Dermatitis atopic
     Dosage: 4 INJECTIONS FOR THE INITIAL DOSE
     Route: 058
     Dates: start: 20230127
  4. ADBRY [Suspect]
     Active Substance: TRALOKINUMAB-LDRM
     Indication: Dermatitis atopic
     Dosage: 4 INJECTIONS FOR THE INITIAL DOSE
     Route: 058
     Dates: start: 20230127
  5. ADBRY [Suspect]
     Active Substance: TRALOKINUMAB-LDRM
     Indication: Dermatitis atopic
     Dosage: 4 INJECTIONS FOR THE INITIAL DOSE
     Route: 058
     Dates: start: 20230127
  6. ADBRY [Suspect]
     Active Substance: TRALOKINUMAB-LDRM
     Indication: Dermatitis atopic
     Dosage: 4 INJECTIONS FOR THE INITIAL DOSE
     Route: 058
     Dates: start: 20230127
  7. ADBRY [Suspect]
     Active Substance: TRALOKINUMAB-LDRM
     Indication: Dermatitis atopic
     Dosage: 4 INJECTIONS FOR THE INITIAL DOSE
     Route: 058
     Dates: start: 20230127
  8. ADBRY [Suspect]
     Active Substance: TRALOKINUMAB-LDRM
     Indication: Dermatitis atopic
     Dosage: 4 INJECTIONS FOR THE INITIAL DOSE
     Route: 058
     Dates: start: 20230127
  9. ADBRY [Suspect]
     Active Substance: TRALOKINUMAB-LDRM
     Indication: Dermatitis atopic
     Dosage: 4 INJECTIONS FOR THE INITIAL DOSE
     Route: 058
     Dates: start: 20230127
  10. ADBRY [Suspect]
     Active Substance: TRALOKINUMAB-LDRM
     Indication: Dermatitis atopic
     Dosage: 2 INJECTIONS EVERY TWO WEEKS
     Route: 058
     Dates: end: 20230227
  11. ADBRY [Suspect]
     Active Substance: TRALOKINUMAB-LDRM
     Indication: Dermatitis atopic
     Dosage: 2 INJECTIONS EVERY TWO WEEKS
     Route: 058
     Dates: end: 20230227
  12. ADBRY [Suspect]
     Active Substance: TRALOKINUMAB-LDRM
     Indication: Dermatitis atopic
     Dosage: 2 INJECTIONS EVERY TWO WEEKS
     Route: 058
     Dates: end: 20230227
  13. ADBRY [Suspect]
     Active Substance: TRALOKINUMAB-LDRM
     Indication: Dermatitis atopic
     Dosage: 2 INJECTIONS EVERY TWO WEEKS
     Route: 058
     Dates: end: 20230227
  14. ADBRY [Suspect]
     Active Substance: TRALOKINUMAB-LDRM
     Indication: Dermatitis atopic
     Dosage: 2 INJECTIONS EVERY TWO WEEKS
     Route: 058
     Dates: end: 20230227
  15. ADBRY [Suspect]
     Active Substance: TRALOKINUMAB-LDRM
     Indication: Dermatitis atopic
     Dosage: 2 INJECTIONS EVERY TWO WEEKS
     Route: 058
     Dates: end: 20230227
  16. ADBRY [Suspect]
     Active Substance: TRALOKINUMAB-LDRM
     Indication: Dermatitis atopic
     Dosage: 2 INJECTIONS EVERY TWO WEEKS
     Route: 058
     Dates: end: 20230227
  17. ADBRY [Suspect]
     Active Substance: TRALOKINUMAB-LDRM
     Indication: Dermatitis atopic
     Dosage: 2 INJECTIONS EVERY TWO WEEKS
     Route: 058
     Dates: end: 20230227
  18. ADBRY [Suspect]
     Active Substance: TRALOKINUMAB-LDRM
     Indication: Dermatitis atopic
     Dosage: 2 INJECTIONS EVERY TWO WEEKS
     Route: 058
     Dates: end: 20230227

REACTIONS (2)
  - Paranasal sinus discomfort [Recovered/Resolved]
  - Nasal congestion [Recovered/Resolved]
